FAERS Safety Report 10693333 (Version 2)
Quarter: 2018Q2

REPORT INFORMATION
  Report Type: Spontaneous
  Country: GB (occurrence: GB)
  Receive Date: 20150106
  Receipt Date: 20180507
  Transmission Date: 20180711
  Serious: Yes (Other)
  Sender: FDA-Public Use
  Company Number: GB-TEVA-532115ISR

PATIENT
  Age: 51 Year
  Sex: Female
  Weight: 163 kg

DRUGS (7)
  1. ATROVENT [Concomitant]
     Active Substance: IPRATROPIUM BROMIDE
     Indication: ASTHMA
     Route: 055
  2. FOSTAIR [Concomitant]
     Active Substance: BECLOMETHASONE\FORMOTEROL
  3. SALBUTAMOL [Concomitant]
     Active Substance: ALBUTEROL
     Indication: ASTHMA
     Route: 055
  4. MONTELUKAST [Concomitant]
     Active Substance: MONTELUKAST SODIUM
  5. PREDNISOLON [Concomitant]
     Active Substance: PREDNISOLONE
  6. PARACETAMOL [Concomitant]
     Active Substance: ACETAMINOPHEN
  7. CLARITHROMYCIN. [Suspect]
     Active Substance: CLARITHROMYCIN
     Indication: LOWER RESPIRATORY TRACT INFECTION
     Dosage: 1000 MILLIGRAM DAILY;
     Route: 048
     Dates: start: 20141218, end: 20141220

REACTIONS (11)
  - Dysarthria [Recovered/Resolved]
  - Aphasia [Recovered/Resolved]
  - Fear [Recovering/Resolving]
  - Tremor [Recovered/Resolved]
  - Pruritus generalised [Recovered/Resolved]
  - Agitation [Not Recovered/Not Resolved]
  - Restlessness [Not Recovered/Not Resolved]
  - Paraesthesia [Recovered/Resolved]
  - Mental impairment [Recovered/Resolved]
  - Paranoia [Recovered/Resolved]
  - Anxiety [Recovering/Resolving]

NARRATIVE: CASE EVENT DATE: 20141219
